FAERS Safety Report 18573363 (Version 4)
Quarter: 2021Q1

REPORT INFORMATION
  Report Type: Report from Study
  Country: FR (occurrence: FR)
  Receive Date: 20201203
  Receipt Date: 20210219
  Transmission Date: 20210419
  Serious: Yes (Death, Hospitalization, Other)
  Sender: FDA-Public Use
  Company Number: FR-BRISTOL-MYERS SQUIBB COMPANY-BMS-2020-099889

PATIENT
  Age: 66 Year
  Sex: Female

DRUGS (1)
  1. NIVOLUMAB [Suspect]
     Active Substance: NIVOLUMAB
     Indication: SQUAMOUS CELL CARCINOMA OF HEAD AND NECK
     Dosage: 240 MILLIGRAM, Q2WK
     Route: 042
     Dates: start: 20200912, end: 20201014

REACTIONS (10)
  - Hypokalaemia [Unknown]
  - Dyspnoea [Unknown]
  - Hyponatraemia [Unknown]
  - Hypoxia [Unknown]
  - Pulmonary embolism [Unknown]
  - Lung disorder [Recovered/Resolved]
  - Malignant neoplasm progression [Fatal]
  - Bronchopneumopathy [Unknown]
  - Pyrexia [Unknown]
  - Inflammation [Unknown]

NARRATIVE: CASE EVENT DATE: 20201027
